FAERS Safety Report 9376492 (Version 1)
Quarter: 2013Q3

REPORT INFORMATION
  Report Type: Spontaneous
  Country: US (occurrence: US)
  Receive Date: 20130701
  Receipt Date: 20130701
  Transmission Date: 20140515
  Serious: No
  Sender: FDA-Public Use
  Company Number: US-PFIZER INC-2013193562

PATIENT
  Age: 48 Year
  Sex: Female
  Weight: 89.8 kg

DRUGS (3)
  1. EFFEXOR XR [Suspect]
     Indication: DEPRESSION
     Dosage: 75 MG, 1X/DAY
     Dates: start: 2004
  2. DILTIAZEM [Concomitant]
     Indication: HYPERTENSION
     Dosage: UNK
  3. TRIAMTERENE [Concomitant]
     Indication: HYPERTENSION
     Dosage: UNK

REACTIONS (1)
  - Abnormal dreams [Unknown]
